FAERS Safety Report 8069996-3 (Version None)
Quarter: 2012Q1

REPORT INFORMATION
  Report Type: 
  Country: None (occurrence: None)
  Receive Date: 20120125
  Receipt Date: 20120119
  Transmission Date: 20120608
  Serious: Yes (Life-Threatening, Hospitalization)
  Sender: FDA-Public Use
  Company Number: AU-B.I. PHARMACEUTICALS,INC./RIDGEFIELD-2012-AU-00140AU

PATIENT
  Sex: Male
  Weight: 75 kg

DRUGS (9)
  1. VENTOLIN [Concomitant]
  2. SPIRACTIN [Concomitant]
     Dosage: 25 MG
  3. PRADAXA [Suspect]
     Indication: ATRIAL FIBRILLATION
     Dosage: 300 MG
     Route: 048
     Dates: start: 20111014
  4. METFORMIN HCL [Concomitant]
     Dosage: 1500 MG
  5. CARVEDILOL [Concomitant]
     Dosage: 50 MG
  6. CRESTOR [Concomitant]
     Dosage: 20 MG
  7. FLUTICASONE PROPIONATE/SALMETEROL [Concomitant]
     Dosage: 250/25 MG
  8. FUROSEMIDE [Concomitant]
     Dosage: 40 MG
  9. BISALAX [Concomitant]

REACTIONS (1)
  - VENTRICULAR TACHYCARDIA [None]
